FAERS Safety Report 19282568 (Version 1)
Quarter: 2021Q2

REPORT INFORMATION
  Report Type: Spontaneous
  Country: US (occurrence: US)
  Receive Date: 20210521
  Receipt Date: 20210521
  Transmission Date: 20210717
  Serious: No
  Sender: FDA-Public Use
  Company Number: US-SA-2021SA168408

PATIENT
  Age: 11 Year
  Sex: Female

DRUGS (3)
  1. DUPIXENT [Suspect]
     Active Substance: DUPILUMAB
     Indication: DERMATITIS ATOPIC
     Dosage: 200 MG, QM
  2. DUPIXENT [Suspect]
     Active Substance: DUPILUMAB
     Dosage: 300 MG
  3. DUPIXENT [Suspect]
     Active Substance: DUPILUMAB
     Indication: ECZEMA
     Dosage: 200 MG, QW

REACTIONS (9)
  - Insomnia [Unknown]
  - Alopecia [Unknown]
  - Drug ineffective [Unknown]
  - Eye pruritus [Unknown]
  - Pruritus [Unknown]
  - Off label use [Unknown]
  - Weight decreased [Unknown]
  - Malaise [Unknown]
  - White blood cell count increased [Unknown]
